FAERS Safety Report 11180260 (Version 5)
Quarter: 2017Q4

REPORT INFORMATION
  Report Type: Report from Study
  Country: DE (occurrence: DE)
  Receive Date: 20150611
  Receipt Date: 20171226
  Transmission Date: 20180320
  Serious: Yes (Hospitalization, Other)
  Sender: FDA-Public Use
  Company Number: DE-ROCHE-1592562

PATIENT
  Age: 59 Year
  Sex: Male

DRUGS (8)
  1. ROACTEMRA [Suspect]
     Active Substance: TOCILIZUMAB
     Indication: RHEUMATOID ARTHRITIS
     Route: 058
     Dates: start: 20140801
  2. DICLOPHENAC [Concomitant]
     Active Substance: DICLOFENAC SODIUM
     Dosage: FOR PAIN DUE TO VERTEBRAL DISC PROLAPSES
     Route: 065
  3. ROACTEMRA [Suspect]
     Active Substance: TOCILIZUMAB
     Route: 058
  4. ROACTEMRA [Suspect]
     Active Substance: TOCILIZUMAB
     Indication: RHEUMATOID ARTHRITIS
     Route: 042
     Dates: start: 20090101, end: 20140701
  5. IDEOS [Concomitant]
     Active Substance: CALCIUM CARBONATE\CHOLECALCIFEROL
     Dosage: FOR SOFT TISSUE RHEUMATISM
     Route: 065
  6. ALENDRON BETA [Concomitant]
     Active Substance: ALENDRONATE SODIUM
     Dosage: AS BONE REGENERATION
     Route: 065
  7. BUPRENORPHIN [Concomitant]
     Active Substance: BUPRENORPHINE
     Route: 065
  8. SYNTESTAN [Concomitant]
     Active Substance: CLOPREDNOL
     Route: 065

REACTIONS (12)
  - Alopecia [Not Recovered/Not Resolved]
  - Blood iron increased [Not Recovered/Not Resolved]
  - Drug effect decreased [Unknown]
  - Rash [Recovered/Resolved]
  - Back pain [Unknown]
  - Confusional state [Recovered/Resolved]
  - Syncope [Recovered/Resolved]
  - Rheumatoid arthritis [Unknown]
  - Deafness unilateral [Not Recovered/Not Resolved]
  - Vasoconstriction [Not Recovered/Not Resolved]
  - Balance disorder [Not Recovered/Not Resolved]
  - Hypertension [Not Recovered/Not Resolved]

NARRATIVE: CASE EVENT DATE: 2009
